FAERS Safety Report 17481106 (Version 2)
Quarter: 2020Q3

REPORT INFORMATION
  Report Type: Spontaneous
  Country: US (occurrence: US)
  Receive Date: 20200302
  Receipt Date: 20200728
  Transmission Date: 20201102
  Serious: Yes (Hospitalization)
  Sender: FDA-Public Use
  Company Number: US-ALKEM LABORATORIES LIMITED-US-ALKEM-2019-11009

PATIENT
  Age: 11 Month
  Sex: Female

DRUGS (1)
  1. OXYCODONE HYDROCHLORIDE. [Suspect]
     Active Substance: OXYCODONE HYDROCHLORIDE
     Indication: PRODUCT USED FOR UNKNOWN INDICATION
     Dosage: UNK
     Route: 048

REACTIONS (6)
  - Lipase increased [Recovered/Resolved]
  - Accidental exposure to product by child [Unknown]
  - Mental status changes [Recovering/Resolving]
  - Altered state of consciousness [Recovering/Resolving]
  - Amylase increased [Recovered/Resolved]
  - Muscle spasms [Unknown]
